FAERS Safety Report 6340370-0 (Version None)
Quarter: 2009Q3

REPORT INFORMATION
  Report Type: 
  Country: None (occurrence: None)
  Receive Date: 20090904
  Receipt Date: 20090827
  Transmission Date: 20100115
  Serious: Yes (Death, Hospitalization, Other)
  Sender: FDA-Public Use
  Company Number: US-BIOGENIDEC-2009BI021046

PATIENT
  Age: 47 Year
  Sex: Female

DRUGS (2)
  1. AVONEX [Suspect]
     Indication: MULTIPLE SCLEROSIS
     Route: 030
     Dates: start: 20040914, end: 20060301
  2. REBIF [Concomitant]

REACTIONS (10)
  - ACUTE RESPIRATORY DISTRESS SYNDROME [None]
  - COAGULOPATHY [None]
  - CONFUSIONAL STATE [None]
  - CORONARY ARTERY DISEASE [None]
  - DEEP VEIN THROMBOSIS [None]
  - GASTROOESOPHAGEAL REFLUX DISEASE [None]
  - HEPATIC FAILURE [None]
  - MALABSORPTION [None]
  - PULMONARY EMBOLISM [None]
  - RENAL FAILURE [None]
